FAERS Safety Report 22066572 (Version 1)
Quarter: 2023Q1

REPORT INFORMATION
  Report Type: Spontaneous
  Country: US (occurrence: US)
  Receive Date: 20230306
  Receipt Date: 20230306
  Transmission Date: 20230418
  Serious: No
  Sender: FDA-Public Use
  Company Number: US-BAUSCHBL-2023BNL001631

PATIENT
  Sex: Female

DRUGS (1)
  1. DORZOLAMIDE HYDROCHLORIDE [Suspect]
     Active Substance: DORZOLAMIDE HYDROCHLORIDE
     Indication: Product used for unknown indication
     Route: 047
     Dates: start: 20230204

REACTIONS (5)
  - Exposure via skin contact [Unknown]
  - Product delivery mechanism issue [Unknown]
  - Accidental exposure to product [Unknown]
  - Wrong dose [Unknown]
  - Incorrect dose administered by product [Unknown]
